FAERS Safety Report 9121248 (Version 2)
Quarter: 2013Q1

REPORT INFORMATION
  Report Type: Report from Study
  Country: FR (occurrence: FR)
  Receive Date: 20130225
  Receipt Date: 20130322
  Transmission Date: 20140127
  Serious: Yes (Hospitalization, Other)
  Sender: FDA-Public Use
  Company Number: FR-BRISTOL-MYERS SQUIBB COMPANY-17272956

PATIENT
  Age: 43 Year
  Sex: Female

DRUGS (6)
  1. IPILIMUMAB [Suspect]
     Indication: MALIGNANT MELANOMA
     Dosage: 10MG/KG?13NOV-13NOV:540MG?03DEC-03DEC:540MG?24DEC-24DEC:500MG
     Route: 042
     Dates: start: 20121113
  2. CORTANCYL [Concomitant]
     Dosage: 1MG/KG
  3. OXYNORM [Concomitant]
     Dosage: ONCE OR TWICE DAILY
  4. OMEPRAZOLE [Concomitant]
  5. DIFFU-K [Concomitant]
  6. BROMAZEPAM [Concomitant]
     Dosage: 1 DF = 1 TABS

REACTIONS (4)
  - Diarrhoea [Recovered/Resolved]
  - Abdominal pain [Unknown]
  - Weight decreased [Unknown]
  - Electrolyte imbalance [Unknown]
